FAERS Safety Report 5824433-1 (Version None)
Quarter: 2008Q3

REPORT INFORMATION
  Report Type: 
  Country: None (occurrence: None)
  Receive Date: 20080728
  Receipt Date: 20080715
  Transmission Date: 20090109
  Serious: Yes (Other)
  Sender: FDA-Public Use
  Company Number: B0522579A

PATIENT
  Age: 63 Year
  Sex: Male
  Weight: 85 kg

DRUGS (2)
  1. SERETIDE [Suspect]
     Indication: ASTHMA
     Dosage: 1PUFF PER DAY
     Route: 055
     Dates: start: 20040301, end: 20080501
  2. ZYRTEC [Concomitant]
     Route: 065

REACTIONS (7)
  - BLOOD TESTOSTERONE FREE DECREASED [None]
  - BLOOD TRIGLYCERIDES INCREASED [None]
  - BLOOD URIC ACID INCREASED [None]
  - BODY HEIGHT DECREASED [None]
  - LYMPHOPENIA [None]
  - OSTEOPOROSIS [None]
  - PROSTATIC SPECIFIC ANTIGEN INCREASED [None]
